FAERS Safety Report 7725531-8 (Version None)
Quarter: 2011Q3

REPORT INFORMATION
  Report Type: 
  Country: None (occurrence: None)
  Receive Date: 20110902
  Receipt Date: 20110826
  Transmission Date: 20111222
  Serious: Yes (Other)
  Sender: FDA-Public Use
  Company Number: DE-GENZYME-FABR-1001845

PATIENT
  Sex: Male
  Weight: 75 kg

DRUGS (3)
  1. FABRAZYME [Suspect]
     Dosage: 1 MG/KG, Q2W
     Route: 042
     Dates: start: 20060321, end: 20100101
  2. FABRAZYME [Suspect]
     Indication: FABRY'S DISEASE
     Dosage: 1 MG/KG, UNK
     Route: 042
  3. FABRAZYME [Suspect]
     Dosage: 0.5 MG/KG, Q3W
     Route: 042
     Dates: start: 20100101

REACTIONS (2)
  - CARDIOMYOPATHY [None]
  - RENAL FAILURE [None]
